FAERS Safety Report 17842063 (Version 1)
Quarter: 2020Q2

REPORT INFORMATION
  Report Type: Spontaneous
  Country: US (occurrence: US)
  Receive Date: 20200529
  Receipt Date: 20200529
  Transmission Date: 20200714
  Serious: Yes (Other)
  Sender: FDA-Public Use
  Company Number: US-NAPPMUNDI-USA-2020-0153025

PATIENT
  Sex: Female

DRUGS (3)
  1. VICODIN [Suspect]
     Active Substance: ACETAMINOPHEN\HYDROCODONE BITARTRATE
     Indication: PAIN
     Dosage: 325 MG, Q3H
     Route: 065
  2. OXYCONTIN [Suspect]
     Active Substance: OXYCODONE HYDROCHLORIDE
     Indication: PRODUCT USED FOR UNKNOWN INDICATION
     Dosage: UNKNOWN
     Route: 048
  3. OXYCODONE HYDROCHLORIDE (SIMILAR TO NDA 22-272) [Suspect]
     Active Substance: OXYCODONE HYDROCHLORIDE
     Indication: PAIN
     Dosage: 20 MG, A DAY
     Route: 048

REACTIONS (9)
  - Affect lability [Unknown]
  - Stress [Unknown]
  - Carotid artery disease [Unknown]
  - Drug dependence [Unknown]
  - Unevaluable event [Unknown]
  - Cerebrovascular accident [Unknown]
  - Impaired quality of life [Unknown]
  - Depression [Unknown]
  - Impaired work ability [Unknown]

NARRATIVE: CASE EVENT DATE: 2013
